FAERS Safety Report 9631898 (Version 1)
Quarter: 2013Q4

REPORT INFORMATION
  Report Type: Spontaneous
  Country: US (occurrence: None)
  Receive Date: 20131017
  Receipt Date: 20131017
  Transmission Date: 20140711
  Serious: Yes (Other)
  Sender: FDA-Public Use
  Company Number: None

PATIENT
  Age: 88 Year
  Sex: Female
  Weight: 85.73 kg

DRUGS (1)
  1. VENLAFAXINE HCL ER 37.5 MG [Suspect]
     Indication: DEPRESSION
     Dosage: 1-3 PILLS ONCE DAILY TAKEN BY MOUTH
     Route: 048
     Dates: start: 20130715, end: 20130722

REACTIONS (4)
  - Asthenia [None]
  - Vision blurred [None]
  - Dysarthria [None]
  - Hallucination [None]
